FAERS Safety Report 21042679 (Version 1)
Quarter: 2022Q3

REPORT INFORMATION
  Report Type: Spontaneous
  Country: US (occurrence: None)
  Receive Date: 20220704
  Receipt Date: 20220704
  Transmission Date: 20221026
  Serious: Yes (Life-Threatening, Hospitalization, Other)
  Sender: FDA-Public Use
  Company Number: None

PATIENT
  Age: 67 Year
  Sex: Male
  Weight: 120.6 kg

DRUGS (7)
  1. PAXLOVID [Suspect]
     Active Substance: NIRMATRELVIR\RITONAVIR
     Indication: SARS-CoV-2 test positive
     Dosage: FREQUENCY : TWICE A DAY;?
     Route: 048
     Dates: start: 20220619, end: 20220624
  2. IBUPROFEN [Concomitant]
     Active Substance: IBUPROFEN
     Dates: end: 20220625
  3. LISINOPRIL [Concomitant]
     Active Substance: LISINOPRIL
     Dates: end: 20220625
  4. METFORMIN [Concomitant]
     Active Substance: METFORMIN HYDROCHLORIDE
     Dates: end: 20220625
  5. ROSUVASTATIN [Concomitant]
     Active Substance: ROSUVASTATIN
     Dates: end: 20220625
  6. TADALAFIL [Concomitant]
     Active Substance: TADALAFIL
     Dates: end: 20220625
  7. ALPRAZOLAM [Concomitant]
     Active Substance: ALPRAZOLAM
     Dates: end: 20220625

REACTIONS (3)
  - Dialysis [None]
  - Asthenia [None]
  - Renal failure [None]

NARRATIVE: CASE EVENT DATE: 20220625
